FAERS Safety Report 4682405-7 (Version None)
Quarter: 2005Q2

REPORT INFORMATION
  Report Type: 
  Country: None (occurrence: None)
  Receive Date: 20050602
  Receipt Date: 20050602
  Transmission Date: 20051028
  Serious: Yes (Life-Threatening, Hospitalization)
  Sender: FDA-Public Use
  Company Number: None

PATIENT
  Age: 39 Year
  Sex: Female
  Weight: 81.1939 kg

DRUGS (1)
  1. AVASTIN [Suspect]
     Indication: COLON CANCER METASTATIC
     Dosage: 5MG/KG IV
     Route: 042
     Dates: start: 20050411

REACTIONS (4)
  - ABASIA [None]
  - DYSARTHRIA [None]
  - EYELID PTOSIS [None]
  - HYPERHIDROSIS [None]
